FAERS Safety Report 22341773 (Version 1)
Quarter: 2023Q2

REPORT INFORMATION
  Report Type: Spontaneous
  Country: US (occurrence: US)
  Receive Date: 20230518
  Receipt Date: 20230518
  Transmission Date: 20230722
  Serious: No
  Sender: FDA-Public Use
  Company Number: US-GALDERMA-US2023005137

PATIENT

DRUGS (6)
  1. PROACTIV MD ADAPALENE ACNE TREATMENT [Suspect]
     Active Substance: ADAPALENE
     Indication: Acne
     Dosage: 1 DOSAGE FORM, QD, PEA SIZED, ONCE DAILY
     Route: 061
     Dates: start: 202301, end: 202301
  2. PROACTIV MD ADAPALENE ACNE TREATMENT [Suspect]
     Active Substance: ADAPALENE
     Dosage: 1 DOSAGE FORM, QD, 2 OR 3 TIMES A WEEK
     Route: 061
     Dates: start: 202301, end: 202301
  3. Proactiv MD Ultra Gentle Cleanser [Concomitant]
     Indication: Acne
     Dosage: 1 DOSAGE FORM, NICKEL SIZE, 2 OR MORE TIMES A DAY
     Route: 061
     Dates: start: 202301, end: 202301
  4. Proactiv MD Ultra Hydrating Moisturizer [Concomitant]
     Indication: Acne
     Dosage: 1 DOSAGE FORM, NICKEL SIZE, 2 OR MORE TIMES A DAY
     Route: 061
     Dates: start: 202301, end: 202301
  5. PROACTIV ACNE BODY WASH [Concomitant]
     Active Substance: SALICYLIC ACID
     Indication: Acne
     Dosage: 1 DOSAGE FORM, NICKEL SIZE, 2 OR MORE TIMES A DAY
     Route: 061
     Dates: start: 202301, end: 202301
  6. PROACTIV SOLUTION BLACKHEAD DISSOLVING [Concomitant]
     Active Substance: SALICYLIC ACID
     Indication: Acne
     Dosage: 1 DOSAGE FORM, NICKEL SIZE, 2 OR MORE TIMES A DAY
     Route: 061
     Dates: start: 202301, end: 202301

REACTIONS (4)
  - Skin irritation [Recovered/Resolved]
  - Skin burning sensation [Recovered/Resolved]
  - Inappropriate schedule of product administration [Recovered/Resolved]
  - Underdose [Recovered/Resolved]

NARRATIVE: CASE EVENT DATE: 20230101
